FAERS Safety Report 6616361-9 (Version None)
Quarter: 2010Q1

REPORT INFORMATION
  Report Type: 
  Country: None (occurrence: None)
  Receive Date: 20100305
  Receipt Date: 20100301
  Transmission Date: 20100710
  Serious: Yes (Other)
  Sender: FDA-Public Use
  Company Number: US-JNJFOC-20100104208

PATIENT
  Age: 48 Year
  Sex: Female

DRUGS (2)
  1. TYLENOL [Suspect]
     Indication: HEADACHE
     Dosage: ABOUT 5 TIMES PER WEEK, TIMES 18 MONTHS
     Route: 048
  2. TYLENOL [Suspect]
     Indication: ARTHRITIS
     Dosage: ABOUT 5 TIMES PER WEEK, TIMES 18 MONTHS
     Route: 048

REACTIONS (7)
  - DECREASED APPETITE [None]
  - DIARRHOEA [None]
  - DIZZINESS [None]
  - HEADACHE [None]
  - PRODUCT QUALITY ISSUE [None]
  - VOMITING [None]
  - WEIGHT DECREASED [None]
